FAERS Safety Report 9648192 (Version 4)
Quarter: 2014Q1

REPORT INFORMATION
  Report Type: Report from Study
  Country: US (occurrence: US)
  Receive Date: 20131028
  Receipt Date: 20140228
  Transmission Date: 20141002
  Serious: Yes (Death)
  Sender: FDA-Public Use
  Company Number: PHEH2013US022326

PATIENT
  Sex: Male

DRUGS (3)
  1. SANDOSTATIN LAR DEPOT [Suspect]
     Indication: CARCINOID TUMOUR
     Dosage: 30 MG
     Dates: start: 201002
  2. SANDOSTATIN LAR DEPOT [Suspect]
     Dosage: UNK UKN, UNK
  3. SANDOSTATIN LAR DEPOT [Suspect]
     Dosage: UNK UKN, UNK

REACTIONS (3)
  - Hepatic failure [Fatal]
  - Malignant neoplasm progression [Fatal]
  - Drug ineffective [Unknown]
